FAERS Safety Report 5238976-5 (Version None)
Quarter: 2007Q1

REPORT INFORMATION
  Report Type: 
  Country: None (occurrence: None)
  Receive Date: 20061208
  Receipt Date: 20050608
  Transmission Date: 20070707
  Serious: Yes (Other)
  Sender: FDA-Public Use
  Company Number: 2005UW08862

PATIENT
  Sex: Male
  Weight: 129.27 kg

DRUGS (6)
  1. CRESTOR [Suspect]
     Dosage: 20 MG PO
     Route: 048
  2. NORVASC [Concomitant]
  3. FLOMAX [Concomitant]
  4. LISINOPRIL [Concomitant]
  5. ZETIA [Concomitant]
  6. GLUCOSAMINE [Concomitant]

REACTIONS (1)
  - RESTLESS LEGS SYNDROME [None]
